FAERS Safety Report 12495125 (Version 10)
Quarter: 2019Q4

REPORT INFORMATION
  Report Type: Spontaneous
  Country: US (occurrence: US)
  Receive Date: 20160624
  Receipt Date: 20191025
  Transmission Date: 20200122
  Serious: Yes (Hospitalization, Other)
  Sender: FDA-Public Use
  Company Number: PHEH2016US015520

PATIENT
  Age: 28 Year
  Sex: Female
  Weight: 54.42 kg

DRUGS (2)
  1. ZOFRAN ODT [Suspect]
     Active Substance: ONDANSETRON HYDROCHLORIDE
     Indication: MORNING SICKNESS
     Dosage: UNK
     Route: 048
  2. ZOFRAN [Suspect]
     Active Substance: ONDANSETRON HYDROCHLORIDE
     Indication: MORNING SICKNESS
     Dosage: 4 MG, PRN
     Route: 048
     Dates: start: 20011009, end: 20020423

REACTIONS (13)
  - Dehydration [Unknown]
  - Vaginal haemorrhage [Unknown]
  - Premature delivery [Unknown]
  - Anxiety [Unknown]
  - Premature labour [Unknown]
  - Maternal exposure during pregnancy [Unknown]
  - Pain [Unknown]
  - Product use in unapproved indication [Unknown]
  - Injury [Unknown]
  - Ligament sprain [Unknown]
  - Emotional distress [Unknown]
  - Upper respiratory tract infection [Unknown]
  - Influenza [Unknown]

NARRATIVE: CASE EVENT DATE: 20020515
